FAERS Safety Report 23351379 (Version 1)
Quarter: 2023Q4

REPORT INFORMATION
  Report Type: Report from Study
  Country: US (occurrence: None)
  Receive Date: 20231229
  Receipt Date: 20231229
  Transmission Date: 20240110
  Serious: Yes (Hospitalization)
  Sender: FDA-Public Use
  Company Number: 2023A293828

PATIENT
  Sex: Female

DRUGS (8)
  1. LYNPARZA [Suspect]
     Active Substance: OLAPARIB
     Indication: Uterine cancer
     Route: 048
     Dates: start: 20231011, end: 20231219
  2. COLACE [Concomitant]
     Active Substance: DOCUSATE SODIUM
  3. MIRALAX [Concomitant]
     Active Substance: POLYETHYLENE GLYCOL 3350
  4. IRON [Concomitant]
     Active Substance: IRON
  5. ZOFRAN [Concomitant]
     Active Substance: ONDANSETRON HYDROCHLORIDE
  6. ACYCLOVIR [Concomitant]
     Active Substance: ACYCLOVIR
  7. SYNTHROID [Concomitant]
     Active Substance: LEVOTHYROXINE SODIUM
  8. LISINOPRIL [Concomitant]
     Active Substance: LISINOPRIL

REACTIONS (12)
  - Haemoglobin decreased [Not Recovered/Not Resolved]
  - Brain hypoxia [Not Recovered/Not Resolved]
  - Cerebrovascular accident [Not Recovered/Not Resolved]
  - Insomnia [Not Recovered/Not Resolved]
  - Psychomotor hyperactivity [Not Recovered/Not Resolved]
  - Decreased appetite [Not Recovered/Not Resolved]
  - Nausea [Not Recovered/Not Resolved]
  - Vomiting [Not Recovered/Not Resolved]
  - Serotonin syndrome [Not Recovered/Not Resolved]
  - Night sweats [Not Recovered/Not Resolved]
  - Dysgeusia [Not Recovered/Not Resolved]
  - Arthralgia [Not Recovered/Not Resolved]
